FAERS Safety Report 16843221 (Version 1)
Quarter: 2019Q3

REPORT INFORMATION
  Report Type: Spontaneous
  Country: US (occurrence: US)
  Receive Date: 20190924
  Receipt Date: 20190924
  Transmission Date: 20191005
  Serious: No
  Sender: FDA-Public Use
  Company Number: US-ALLERGAN-1909295US

PATIENT
  Sex: Female

DRUGS (1)
  1. LEXAPRO [Suspect]
     Active Substance: ESCITALOPRAM OXALATE
     Indication: GENERALISED ANXIETY DISORDER
     Dosage: UNK
     Route: 065

REACTIONS (1)
  - Anxiety [Unknown]
